FAERS Safety Report 9637086 (Version 1)
Quarter: 2013Q4

REPORT INFORMATION
  Report Type: Spontaneous
  Country: US (occurrence: US)
  Receive Date: 20131022
  Receipt Date: 20131022
  Transmission Date: 20140711
  Serious: Yes (Hospitalization)
  Sender: FDA-Public Use
  Company Number: US-BRISTOL-MYERS SQUIBB COMPANY-19625409

PATIENT
  Age: 66 Year
  Sex: Female

DRUGS (25)
  1. BYETTA [Suspect]
     Dates: start: 2005
  2. ASPIRIN [Concomitant]
     Route: 042
  3. CETIRIZINE [Concomitant]
  4. DIPHENHYDRAMINE [Concomitant]
  5. FAMOTIDINE [Concomitant]
  6. FLUCONAZOLE [Concomitant]
  7. FUROSEMIDE [Concomitant]
     Route: 042
  8. INSULIN ASPART [Concomitant]
  9. INSULIN GLARGINE [Concomitant]
  10. LEVOTHYROXINE [Concomitant]
     Route: 048
  11. LOPERAMIDE [Concomitant]
  12. METOPROLOL [Concomitant]
     Route: 042
  13. NYSTATIN + TRIAMCINOLONE ACETONIDE [Concomitant]
  14. ONDANSETRON [Concomitant]
  15. PHENAZOPYRIDINE [Concomitant]
  16. POTASSIUM CHLORIDE SR [Concomitant]
  17. SENNA [Concomitant]
  18. TERCONAZOLE [Concomitant]
  19. VALSARTAN [Concomitant]
  20. DOCUSATE SODIUM [Concomitant]
     Route: 048
  21. HEPARIN [Concomitant]
     Dosage: 5,000 UNITS
     Route: 058
  22. INSULIN LISPRO [Concomitant]
     Dosage: 0-13 UNITS
     Route: 058
  23. PANTOPRAZOLE [Concomitant]
     Route: 048
  24. DEXTROSE [Concomitant]
  25. IOVERSOL [Concomitant]

REACTIONS (1)
  - Adenocarcinoma pancreas [Unknown]
